FAERS Safety Report 9078526 (Version 1)
Quarter: 2013Q1

REPORT INFORMATION
  Report Type: Report from Study
  Country: US (occurrence: US)
  Receive Date: 20130130
  Receipt Date: 20130130
  Transmission Date: 20140127
  Serious: No
  Sender: FDA-Public Use
  Company Number: US-ABBOTT-12P-163-0956818-00

PATIENT
  Age: 56 Year
  Sex: Female

DRUGS (10)
  1. HUMIRA 40 MG/0.8 ML PEN [Suspect]
     Indication: ARTHRITIS REACTIVE
     Route: 058
     Dates: start: 20120712
  2. MEDROL [Concomitant]
     Indication: PRODUCT USED FOR UNKNOWN INDICATION
     Dates: end: 20120714
  3. ATENOLOL [Concomitant]
     Indication: HYPERTENSION
     Dosage: 50MG DAILY
  4. HYDROCHLOORTHIAZIDE [Concomitant]
     Indication: BLOOD PRESSURE
     Dosage: 12.5MG DAILY
  5. PROZAC [Concomitant]
     Indication: DEPRESSION
     Dosage: 20MG DAILY
  6. OMEPRAZOLE [Concomitant]
     Indication: GASTROOESOPHAGEAL REFLUX DISEASE
     Dosage: DAILY
  7. VICODIN [Concomitant]
     Indication: PAIN
  8. MULTIVITAMIN [Concomitant]
     Indication: VITAMIN SUPPLEMENTATION
     Dosage: DAILY
  9. FISH OIL [Concomitant]
     Indication: SUPPLEMENTATION THERAPY
     Dosage: DAILY
  10. CALTRATE D PLUS D [Concomitant]
     Indication: SUPPLEMENTATION THERAPY
     Dosage: DAILY

REACTIONS (2)
  - Headache [Not Recovered/Not Resolved]
  - Headache [Unknown]
